FAERS Safety Report 11950187 (Version 1)
Quarter: 2016Q1

REPORT INFORMATION
  Report Type: Spontaneous
  Country: US (occurrence: US)
  Receive Date: 20160126
  Receipt Date: 20160126
  Transmission Date: 20160526
  Serious: No
  Sender: FDA-Public Use
  Company Number: US-ASTRAZENECA-2016SE05723

PATIENT
  Age: 53 Year
  Sex: Male
  Weight: 45.4 kg

DRUGS (2)
  1. ASPIRIN. [Concomitant]
     Active Substance: ASPIRIN
     Indication: CARDIAC DISORDER
     Route: 048
  2. CRESTOR [Suspect]
     Active Substance: ROSUVASTATIN CALCIUM
     Dosage: DAILY
     Route: 048

REACTIONS (2)
  - Intentional product misuse [Unknown]
  - Haemorrhage [Unknown]

NARRATIVE: CASE EVENT DATE: 201601
